FAERS Safety Report 4849788-6 (Version None)
Quarter: 2005Q4

REPORT INFORMATION
  Report Type: 
  Country: None (occurrence: None)
  Receive Date: 20051107
  Receipt Date: 20041122
  Transmission Date: 20060501
  Serious: Yes (Other)
  Sender: FDA-Public Use
  Company Number: PHEH2004US12644

PATIENT
  Sex: Female

DRUGS (6)
  1. ESTROGENS(ESTROGENS) [Suspect]
     Indication: HORMONE REPLACEMENT THERAPY
  2. MEDROXYPROGESTERONE ACETATE [Suspect]
     Indication: HORMONE REPLACEMENT THERAPY
  3. PREMPRO [Suspect]
  4. PREMPHASE (PREMARIN;CYCRIN 14/14) [Suspect]
  5. PREMARIN [Suspect]
  6. PROVERA [Suspect]

REACTIONS (4)
  - BREAST CANCER [None]
  - BREAST COSMETIC SURGERY [None]
  - BREAST OPERATION [None]
  - MASTECTOMY [None]
